FAERS Safety Report 8185869-X (Version None)
Quarter: 2012Q1

REPORT INFORMATION
  Report Type: 
  Country: None (occurrence: None)
  Receive Date: 20120305
  Receipt Date: 20120223
  Transmission Date: 20120608
  Serious: Yes (Other)
  Sender: FDA-Public Use
  Company Number: US-ASTRAZENECA-2012SE13147

PATIENT
  Age: 58 Year
  Sex: Female
  Weight: 52.2 kg

DRUGS (6)
  1. ALBUTEROL [Concomitant]
     Indication: INHALATION THERAPY
     Route: 055
  2. SPIRIVA [Concomitant]
     Indication: CHRONIC OBSTRUCTIVE PULMONARY DISEASE
     Dosage: BID
     Route: 055
  3. LEXAPRO [Concomitant]
     Indication: DEPRESSION
  4. SYMBICORT [Suspect]
     Indication: CHRONIC OBSTRUCTIVE PULMONARY DISEASE
     Dosage: 160/4.5 TWO TIMES A DAY
     Route: 055
  5. LEMECTAL [Concomitant]
     Indication: BIPOLAR DISORDER
  6. SYMBICORT [Suspect]
     Indication: EMPHYSEMA
     Dosage: 160/4.5 TWO TIMES A DAY
     Route: 055

REACTIONS (2)
  - MENINGITIS [None]
  - TUBERCULOSIS [None]
